FAERS Safety Report 9668461 (Version 1)
Quarter: 2013Q4

REPORT INFORMATION
  Report Type: Spontaneous
  Country: FR (occurrence: FR)
  Receive Date: 20131105
  Receipt Date: 20131105
  Transmission Date: 20140711
  Serious: Yes (Hospitalization, Other)
  Sender: FDA-Public Use
  Company Number: FR-ROCHE-1297852

PATIENT
  Age: 71 Year
  Sex: Female

DRUGS (8)
  1. LUCENTIS [Suspect]
     Indication: AGE-RELATED MACULAR DEGENERATION
     Dosage: 10 MG/ML
     Route: 031
  2. TRAVATAN [Suspect]
     Indication: PRODUCT USED FOR UNKNOWN INDICATION
     Route: 047
  3. CARTEOL [Suspect]
     Indication: AGE-RELATED MACULAR DEGENERATION
     Route: 047
  4. ALDACTONE (FRANCE) [Suspect]
     Indication: HYPERTENSION
     Dosage: 75 MG/DAY
     Route: 065
  5. KIVEXA [Suspect]
     Indication: HIV INFECTION
     Route: 065
  6. SUSTIVA [Suspect]
     Indication: HIV INFECTION
     Route: 065
  7. MONO TILDIEM [Suspect]
     Indication: PRODUCT USED FOR UNKNOWN INDICATION
     Dosage: 300 MG/DAY
     Route: 065
  8. CRESTOR [Suspect]
     Indication: PRODUCT USED FOR UNKNOWN INDICATION
     Route: 065

REACTIONS (1)
  - Cardiomyopathy [Not Recovered/Not Resolved]
